FAERS Safety Report 9398650 (Version 1)
Quarter: 2013Q3

REPORT INFORMATION
  Report Type: Report from Study
  Country: DE (occurrence: DE)
  Receive Date: 20130712
  Receipt Date: 20130712
  Transmission Date: 20140515
  Serious: Yes (Hospitalization, Other)
  Sender: FDA-Public Use
  Company Number: DE-BAXTER-2013BAX026035

PATIENT
  Age: 46 Year
  Sex: Female

DRUGS (10)
  1. ENDOXAN 1G [Suspect]
     Indication: BREAST CANCER
     Route: 042
     Dates: start: 20130617
  2. TRASTUZUMAB [Suspect]
     Indication: BREAST CANCER
     Route: 042
     Dates: start: 20130325, end: 20130527
  3. TRASTUZUMAB [Suspect]
     Route: 042
     Dates: start: 20130617
  4. TRASTUZUMAB [Suspect]
     Route: 042
     Dates: start: 20130527
  5. PERTUZUMAB [Suspect]
     Indication: BREAST CANCER
     Route: 042
     Dates: start: 20130325
  6. PERTUZUMAB [Suspect]
     Route: 042
     Dates: start: 20130617
  7. PERTUZUMAB [Suspect]
     Route: 042
     Dates: start: 20130527
  8. PACLITAXEL ALBUMIN [Suspect]
     Indication: BREAST CANCER
     Route: 042
     Dates: start: 20130325, end: 20130527
  9. PACLITAXEL ALBUMIN [Suspect]
     Route: 042
     Dates: start: 20130521
  10. EPIRUBICIN [Suspect]
     Indication: BREAST CANCER
     Route: 042
     Dates: start: 20130617

REACTIONS (2)
  - Pyrexia [Recovered/Resolved]
  - Thrombosis [Not Recovered/Not Resolved]
